FAERS Safety Report 4457295-8 (Version None)
Quarter: 2004Q3

REPORT INFORMATION
  Report Type: 
  Country: None (occurrence: None)
  Receive Date: 20040921
  Receipt Date: 20040907
  Transmission Date: 20050211
  Serious: Yes (Hospitalization)
  Sender: FDA-Public Use
  Company Number: B0344709A

PATIENT
  Age: 12 Month
  Sex: Male

DRUGS (7)
  1. AMOXIL [Suspect]
     Indication: PHARYNGEAL ERYTHEMA
     Dosage: ORAL
     Route: 046
     Dates: start: 20040716, end: 20040717
  2. ACETAMINOPHEN [Suspect]
     Indication: PYREXIA
     Dates: start: 20040716
  3. IBUPROFEN [Suspect]
     Indication: PYREXIA
     Dosage: SEE DOSAGE TEXT/ORAL
     Route: 048
     Dates: start: 20040717, end: 20040717
  4. TRICLOCARBAN [Concomitant]
  5. DEXCHLORPHENIRAM.MALEATE [Concomitant]
  6. SOAP [Concomitant]
  7. PARACETAMOL [Concomitant]

REACTIONS (4)
  - LUNG DISORDER [None]
  - PHARYNGEAL ERYTHEMA [None]
  - PNEUMONIA [None]
  - VARICELLA [None]
